FAERS Safety Report 6381941-5 (Version None)
Quarter: 2009Q3

REPORT INFORMATION
  Report Type: 
  Country: None (occurrence: None)
  Receive Date: 20090930
  Receipt Date: 20090915
  Transmission Date: 20100115
  Serious: No
  Sender: FDA-Public Use
  Company Number: US-TYCO HEALTHCARE/MALLINCKRODT-T200901719

PATIENT
  Sex: Female
  Weight: 70.295 kg

DRUGS (6)
  1. HYDROMORPHONE HCL [Suspect]
     Indication: CANCER PAIN
     Dosage: UNK
     Route: 048
     Dates: start: 20090101
  2. ACETAMINOPHEN AND HYDROCODONE BITARTRATE [Suspect]
     Dosage: ONE TABLET, FOUR TIMES DAILY
     Route: 048
     Dates: start: 20090101, end: 20090101
  3. DILAUDID [Suspect]
     Indication: CANCER PAIN
     Dosage: UNK
     Route: 048
     Dates: start: 20090101
  4. AROMASIN [Concomitant]
     Indication: HORMONE SUPPRESSION THERAPY
     Dosage: UNK
     Route: 048
  5. SENNA-S                            /01035001/ [Concomitant]
     Indication: CONSTIPATION PROPHYLAXIS
     Dosage: UNK
     Route: 048
  6. ZOFRAN [Concomitant]
     Indication: NAUSEA
     Dosage: UNK
     Route: 048

REACTIONS (6)
  - ARTHRALGIA [None]
  - DRUG INEFFECTIVE [None]
  - INSOMNIA [None]
  - MOOD SWINGS [None]
  - NAUSEA [None]
  - POLLAKIURIA [None]
